FAERS Safety Report 12803703 (Version 5)
Quarter: 2017Q1

REPORT INFORMATION
  Report Type: Report from Study
  Country: DE (occurrence: DE)
  Receive Date: 20161003
  Receipt Date: 20170113
  Transmission Date: 20170428
  Serious: Yes (Hospitalization)
  Sender: FDA-Public Use
  Company Number: DE-CELGENEUS-DEU-2016096425

PATIENT
  Age: 65 Year
  Sex: Male

DRUGS (26)
  1. IVEMEND [Concomitant]
     Active Substance: FOSAPREPITANT DIMEGLUMINE
     Indication: PROPHYLAXIS
     Dosage: UNKNOWN
     Route: 065
  2. BISOPROLOL [Concomitant]
     Active Substance: BISOPROLOL
     Indication: HYPERTENSION
     Dosage: UNKNOWN
     Route: 065
  3. PANTOZOL [Concomitant]
     Active Substance: PANTOPRAZOLE SODIUM
     Indication: PRODUCT USED FOR UNKNOWN INDICATION
     Dosage: UNKNOWN
     Route: 065
  4. CALCIVIT D [Concomitant]
     Indication: PRODUCT USED FOR UNKNOWN INDICATION
     Dosage: UNKNOWN
     Route: 065
  5. ABRAXANE [Suspect]
     Active Substance: PACLITAXEL
     Indication: NON-SMALL CELL LUNG CANCER STAGE IV
     Dosage: 157.5MG
     Route: 041
     Dates: start: 20160705, end: 20160913
  6. INNOHEP [Concomitant]
     Active Substance: TINZAPARIN SODIUM
     Indication: C-REACTIVE PROTEIN INCREASED
  7. PANTOZOL [Concomitant]
     Active Substance: PANTOPRAZOLE SODIUM
     Indication: C-REACTIVE PROTEIN INCREASED
  8. TORASEMID [Concomitant]
     Active Substance: TORSEMIDE
     Indication: HYPERTENSION
     Dosage: UNKNOWN
     Route: 065
  9. BISOPROLOL [Concomitant]
     Active Substance: BISOPROLOL
     Indication: C-REACTIVE PROTEIN INCREASED
  10. ATORVASTATIN [Concomitant]
     Active Substance: ATORVASTATIN
     Indication: CORONARY ARTERY DISEASE
     Dosage: UNKNOWN
     Route: 065
  11. ATEZOLIZUMAB [Suspect]
     Active Substance: ATEZOLIZUMAB
     Indication: NON-SMALL CELL LUNG CANCER STAGE IV
     Dosage: 1200MG
     Route: 041
     Dates: start: 20160705, end: 20160907
  12. CEFUROXIME. [Concomitant]
     Active Substance: CEFUROXIME
     Indication: C-REACTIVE PROTEIN INCREASED
  13. RAMIPRIL. [Concomitant]
     Active Substance: RAMIPRIL
     Indication: HYPERTENSION
     Dosage: UNKNOWN
     Route: 065
  14. CALCIVIT D [Concomitant]
     Indication: C-REACTIVE PROTEIN INCREASED
  15. RAMIPRIL. [Concomitant]
     Active Substance: RAMIPRIL
     Indication: C-REACTIVE PROTEIN INCREASED
  16. EPLERENONE. [Concomitant]
     Active Substance: EPLERENONE
     Indication: C-REACTIVE PROTEIN INCREASED
  17. INNOHEP [Concomitant]
     Active Substance: TINZAPARIN SODIUM
     Indication: PROPHYLAXIS
     Dosage: UNKNOWN
     Route: 065
  18. TORASEMID [Concomitant]
     Active Substance: TORSEMIDE
     Indication: C-REACTIVE PROTEIN INCREASED
  19. ATORVASTATIN [Concomitant]
     Active Substance: ATORVASTATIN
     Indication: C-REACTIVE PROTEIN INCREASED
  20. CARBOPLATIN. [Suspect]
     Active Substance: CARBOPLATIN
     Indication: NON-SMALL CELL LUNG CANCER STAGE IV
     Dosage: 420MG
     Route: 041
     Dates: start: 20160705, end: 20160907
  21. GRANISETRON [Concomitant]
     Active Substance: GRANISETRON
     Indication: PROPHYLAXIS
     Dosage: UNKNOWN
     Route: 065
     Dates: start: 20160913, end: 20160913
  22. GRANISETRON [Concomitant]
     Active Substance: GRANISETRON
     Indication: C-REACTIVE PROTEIN INCREASED
  23. ULTIBRO BREEZHALER [Concomitant]
     Active Substance: GLYCOPYRRONIUM\INDACATEROL
     Indication: C-REACTIVE PROTEIN INCREASED
  24. CEFUROXIME. [Concomitant]
     Active Substance: CEFUROXIME
     Indication: PROPHYLAXIS
     Dosage: UNKNOWN
     Route: 065
     Dates: start: 20160919, end: 20160925
  25. EPLERENONE. [Concomitant]
     Active Substance: EPLERENONE
     Indication: CORONARY ARTERY DISEASE
     Dosage: UNKNOWN
     Route: 065
  26. ULTIBRO BREEZHALER [Concomitant]
     Active Substance: GLYCOPYRRONIUM\INDACATEROL
     Indication: CHRONIC OBSTRUCTIVE PULMONARY DISEASE
     Dosage: UNKNOWN
     Route: 065

REACTIONS (1)
  - Radiation oesophagitis [Recovered/Resolved]

NARRATIVE: CASE EVENT DATE: 20160916
